FAERS Safety Report 24278645 (Version 3)
Quarter: 2024Q4

REPORT INFORMATION
  Report Type: Report from Study
  Country: US (occurrence: US)
  Receive Date: 20240903
  Receipt Date: 20241114
  Transmission Date: 20250114
  Serious: Yes (Other)
  Sender: SUNOVION
  Company Number: US-SUMITOMO PHARMA SWITZERLAND GMBH-2024SPA001043

PATIENT

DRUGS (16)
  1. ORGOVYX [Suspect]
     Active Substance: RELUGOLIX
     Indication: Prostate cancer
     Dosage: 360 MG, SINGLE
     Route: 048
  2. ORGOVYX [Suspect]
     Active Substance: RELUGOLIX
     Dosage: 120 MG, QD
     Route: 048
  3. CEFDINIR [Concomitant]
     Active Substance: CEFDINIR
     Route: 065
  4. ELIQUIS [Concomitant]
     Active Substance: APIXABAN
     Route: 065
  5. EZETIMIBE [Concomitant]
     Active Substance: EZETIMIBE
     Route: 065
  6. FINASTERIDE [Concomitant]
     Active Substance: FINASTERIDE
     Route: 065
  7. LASIX [Concomitant]
     Active Substance: FUROSEMIDE
     Route: 065
  8. METOPROLOL TARTRATE [Concomitant]
     Active Substance: METOPROLOL TARTRATE
     Route: 065
  9. VITAMINS [Concomitant]
     Active Substance: VITAMINS
     Route: 065
  10. PRAVASTATIN [Concomitant]
     Active Substance: PRAVASTATIN
     Route: 065
  11. TAMSULOSIN [Concomitant]
     Active Substance: TAMSULOSIN
     Route: 065
  12. TRELEGY ELLIPTA [Concomitant]
     Active Substance: FLUTICASONE FUROATE\UMECLIDINIUM BROMIDE\VILANTEROL TRIFENATATE
     Route: 065
  13. VITAMIN D3 [Concomitant]
     Active Substance: CHOLECALCIFEROL
     Route: 065
  14. VITAMIN C [Concomitant]
     Active Substance: ASCORBIC ACID
  15. POTASSIUM [Concomitant]
     Active Substance: POTASSIUM
     Route: 065
  16. MAGNESIUM [Concomitant]
     Active Substance: MAGNESIUM
     Route: 065

REACTIONS (2)
  - Urethrotomy [Unknown]
  - Pain [Unknown]

NARRATIVE: CASE EVENT DATE: 20241001
